FAERS Safety Report 11828044 (Version 1)
Quarter: 2015Q4

REPORT INFORMATION
  Report Type: Spontaneous
  Country: SK (occurrence: SK)
  Receive Date: 20151211
  Receipt Date: 20151211
  Transmission Date: 20160305
  Serious: Yes (Other)
  Sender: FDA-Public Use
  Company Number: SK-ELI_LILLY_AND_COMPANY-SK201404003749

PATIENT
  Age: 70 Year
  Sex: Male

DRUGS (2)
  1. CISPLATIN. [Concomitant]
     Active Substance: CISPLATIN
     Indication: LUNG ADENOCARCINOMA
     Dosage: UNK
     Dates: start: 201205, end: 201208
  2. ALIMTA [Suspect]
     Active Substance: PEMETREXED DISODIUM
     Indication: LUNG ADENOCARCINOMA
     Dosage: UNK UNK, OTHER
     Route: 065
     Dates: start: 201205, end: 201304

REACTIONS (4)
  - Thrombophlebitis [Recovering/Resolving]
  - Erysipelas [Recovering/Resolving]
  - Urinary retention [Recovering/Resolving]
  - Nephropathy toxic [Recovering/Resolving]
